FAERS Safety Report 12825293 (Version 3)
Quarter: 2016Q4

REPORT INFORMATION
  Report Type: Spontaneous
  Country: US (occurrence: US)
  Receive Date: 20161006
  Receipt Date: 20161025
  Transmission Date: 20170207
  Serious: No
  Sender: FDA-Public Use
  Company Number: US-PFIZER INC-2016465563

PATIENT
  Sex: Female

DRUGS (4)
  1. LIPITOR [Suspect]
     Active Substance: ATORVASTATIN CALCIUM
     Dosage: 5 MG, UNK
  2. LIPITOR [Suspect]
     Active Substance: ATORVASTATIN CALCIUM
     Dosage: 2.5 MG (CUTTING IN 4 THE 10 MG TABLETS)
  3. LIPITOR [Suspect]
     Active Substance: ATORVASTATIN CALCIUM
     Dosage: 10 MG, UNK
  4. LIPITOR [Suspect]
     Active Substance: ATORVASTATIN CALCIUM
     Dosage: 2.5 MG (20MG PILL AND BREAKING IT IN HALF, AND HALF AGAIN, AND HALF AGAIN/20 MG INTO 8 PIECES) )

REACTIONS (4)
  - Muscle twitching [Unknown]
  - Incorrect dose administered [Unknown]
  - Prescribed underdose [Unknown]
  - Intentional product misuse [Unknown]
